FAERS Safety Report 8929191 (Version 1)
Quarter: 2012Q4

REPORT INFORMATION
  Report Type: 
  Country: GB (occurrence: GB)
  Receive Date: 20121128
  Receipt Date: 20121128
  Transmission Date: 20130627
  Serious: Yes (Hospitalization)
  Sender: FDA-Public Use
  Company Number: GB-SANOFI-AVENTIS-2012SA084909

PATIENT
  Age: 72 Year
  Sex: Male

DRUGS (9)
  1. CLOPIDOGREL BISULFATE [Suspect]
     Indication: MYOCARDIAL INFARCTION PROPHYLAXIS
     Route: 048
     Dates: start: 20120626
  2. ASPIRIN [Suspect]
     Indication: MYOCARDIAL INFARCTION PROPHYLAXIS
     Route: 048
     Dates: start: 20120626
  3. BLINDED THERAPY [Concomitant]
     Indication: ACUTE MYOCARDIAL INFARCTION
     Dates: start: 20120625, end: 20121003
  4. OMEPRAZOLE [Concomitant]
     Indication: PROPHYLAXIS
  5. PERINDOPRIL [Concomitant]
     Indication: MYOCARDIAL INFARCTION PROPHYLAXIS
  6. ATORVASTATIN [Concomitant]
     Indication: MYOCARDIAL INFARCTION PROPHYLAXIS
  7. BISOPROLOL [Concomitant]
     Indication: MYOCARDIAL INFARCTION PROPHYLAXIS
  8. FERROUS SULFATE [Concomitant]
     Indication: BLOOD IRON DECREASED
  9. FUROSEMIDE [Concomitant]
     Indication: PULMONARY EDEMA

REACTIONS (1)
  - Anaemia [Recovered/Resolved]
